FAERS Safety Report 15838444 (Version 1)
Quarter: 2019Q1

REPORT INFORMATION
  Report Type: Report from Study
  Country: US (occurrence: US)
  Receive Date: 20190117
  Receipt Date: 20190117
  Transmission Date: 20190417
  Serious: Yes (Hospitalization, Other)
  Sender: FDA-Public Use
  Company Number: PHEH2019US001540

PATIENT
  Sex: Female

DRUGS (1)
  1. COSENTYX [Suspect]
     Active Substance: SECUKINUMAB
     Indication: PSORIASIS
     Dosage: 300 MG, QW
     Route: 058

REACTIONS (7)
  - Fall [Unknown]
  - Feeling abnormal [Unknown]
  - Finger deformity [Unknown]
  - Patellofemoral pain syndrome [Unknown]
  - Chondropathy [Unknown]
  - Intervertebral disc protrusion [Unknown]
  - Rheumatoid arthritis [Unknown]
